FAERS Safety Report 20297065 (Version 1)
Quarter: 2022Q1

REPORT INFORMATION
  Report Type: Spontaneous
  Country: DE (occurrence: DE)
  Receive Date: 20220105
  Receipt Date: 20220105
  Transmission Date: 20220423
  Serious: Yes (Hospitalization, Other)
  Sender: FDA-Public Use
  Company Number: DE-ADRED-07651-01

PATIENT
  Age: 51 Year
  Sex: Female

DRUGS (1)
  1. CLOPIDOGREL [Suspect]
     Active Substance: CLOPIDOGREL BISULFATE
     Indication: Product used for unknown indication
     Dosage: 75 MG, 1-0-0-0, TABLETS ()
     Route: 048

REACTIONS (5)
  - Dizziness [Unknown]
  - Fall [Unknown]
  - Somnolence [Unknown]
  - Headache [Unknown]
  - Subdural haematoma [Unknown]
